FAERS Safety Report 7387466-2 (Version None)
Quarter: 2011Q1

REPORT INFORMATION
  Report Type: 
  Country: None (occurrence: None)
  Receive Date: 20110331
  Receipt Date: 20110325
  Transmission Date: 20110831
  Serious: Yes (Other)
  Sender: FDA-Public Use
  Company Number: CZ-PFIZER INC-2011058907

PATIENT
  Age: 56 Year
  Sex: Female

DRUGS (4)
  1. EPIRUBICIN HYDROCHLORIDE [Suspect]
     Indication: BREAST CANCER
     Dosage: 75 MG/M2, UNK
     Route: 042
     Dates: start: 20040101
  2. TAXOL [Suspect]
     Indication: BREAST CANCER
     Dosage: 175 MG/M2, UNK
     Route: 042
     Dates: start: 20040101
  3. DOXORUBICIN HCL [Suspect]
     Indication: BREAST CANCER
     Dosage: UNK
     Dates: start: 20040101
  4. CYCLOPHOSPHAMIDE [Suspect]
     Indication: BREAST CANCER
     Dosage: 600 MG/M2, UNK
     Route: 042
     Dates: start: 20040101

REACTIONS (2)
  - CEREBRAL TOXOPLASMOSIS [None]
  - SECONDARY IMMUNODEFICIENCY [None]
